FAERS Safety Report 8621636-8 (Version None)
Quarter: 2012Q3

REPORT INFORMATION
  Report Type: 
  Country: None (occurrence: None)
  Receive Date: 20120820
  Receipt Date: 20120820
  Transmission Date: 20120928
  Serious: No
  Sender: FDA-Public Use
  Company Number: None

PATIENT
  Sex: Male

DRUGS (11)
  1. NEVIRAPINE [Concomitant]
  2. XANAX [Concomitant]
  3. TRUVADA [Concomitant]
  4. OMEPRAZOLE [Concomitant]
  5. ATORVASTASTIN [Concomitant]
  6. QVAR 40 [Concomitant]
  7. SALMETEROL [Concomitant]
  8. COUMADIN [Concomitant]
  9. SERTRALINE HYDROCHLORIDE [Concomitant]
  10. EGRIFTA [Suspect]
     Indication: LIPODYSTROPHY ACQUIRED
     Dosage: EGRIFTA 1MG VIALS 2 MG DAILY SC
     Route: 058
     Dates: start: 20110826, end: 20120330
  11. METOPROLOL TARTRATE [Concomitant]

REACTIONS (5)
  - PAIN IN EXTREMITY [None]
  - BURNING SENSATION [None]
  - INSOMNIA [None]
  - NEUROPATHY PERIPHERAL [None]
  - FATIGUE [None]
